FAERS Safety Report 15348162 (Version 1)
Quarter: 2018Q3

REPORT INFORMATION
  Report Type: Spontaneous
  Country: US (occurrence: US)
  Receive Date: 20180829
  Receipt Date: 20180829
  Transmission Date: 20181010
  Serious: Yes (Death)
  Sender: FDA-Public Use
  Company Number: None

PATIENT
  Age: 59 Year
  Sex: Male

DRUGS (1)
  1. GRANIX [Suspect]
     Active Substance: TBO-FILGRASTIM
     Indication: HODGKIN^S DISEASE
     Dosage: ?          OTHER STRENGTH:480/0.8 UG/ML;?
     Route: 058
     Dates: start: 20180412, end: 20180728

REACTIONS (2)
  - Blood disorder [None]
  - Myocardial infarction [None]

NARRATIVE: CASE EVENT DATE: 20180728
